FAERS Safety Report 4853114-6 (Version None)
Quarter: 2005Q4

REPORT INFORMATION
  Report Type: 
  Country: None (occurrence: None)
  Receive Date: 20051212
  Receipt Date: 20051130
  Transmission Date: 20060501
  Serious: Yes (Other)
  Sender: FDA-Public Use
  Company Number: HQWYE585917NOV05

PATIENT
  Age: 59 Year
  Sex: Female

DRUGS (2)
  1. ETODOLAC [Suspect]
     Indication: PERIARTHRITIS
     Dosage: 400 MG 1X PER 1 DAY, ORAL
     Route: 048
     Dates: start: 20051108, end: 20051110
  2. SOLON (SOFALCONE) [Concomitant]

REACTIONS (1)
  - TOXIC SKIN ERUPTION [None]
